FAERS Safety Report 19535666 (Version 2)
Quarter: 2022Q2

REPORT INFORMATION
  Report Type: Spontaneous
  Country: CA (occurrence: CA)
  Receive Date: 20210714
  Receipt Date: 20220411
  Transmission Date: 20220721
  Serious: Yes (Other)
  Sender: FDA-Public Use
  Company Number: CA-SA-SAC20210709000430

PATIENT
  Sex: Female

DRUGS (12)
  1. RANITIDINE [Suspect]
     Active Substance: RANITIDINE
     Indication: Product used for unknown indication
     Dosage: 150 MG
     Route: 065
  2. ATENOLOL [Suspect]
     Active Substance: ATENOLOL
     Indication: Product used for unknown indication
     Dosage: 50 MG
     Route: 048
  3. DICLOFENAC [Suspect]
     Active Substance: DICLOFENAC
     Indication: Product used for unknown indication
     Dosage: 1.16 %
     Route: 061
  4. FOLIC ACID [Suspect]
     Active Substance: FOLIC ACID
     Indication: Product used for unknown indication
     Dosage: 5 MG, WEEKLY
     Route: 048
  5. METHOTREXATE [Suspect]
     Active Substance: METHOTREXATE
     Indication: Rheumatoid arthritis
     Dosage: 25 MG, EVERY WEEK
     Route: 058
  6. PERINDOPRIL [Suspect]
     Active Substance: PERINDOPRIL
     Indication: Product used for unknown indication
     Dosage: 4 MG
     Route: 048
  7. XELJANZ [Suspect]
     Active Substance: TOFACITINIB CITRATE
     Indication: Rheumatoid arthritis
     Dosage: 5 MG, BID
     Route: 048
  8. ACTEMRA [Suspect]
     Active Substance: TOCILIZUMAB
     Indication: Rheumatoid arthritis
     Dosage: 125 MG
     Route: 058
  9. VITAMIN D3 [Concomitant]
     Active Substance: CHOLECALCIFEROL
     Dosage: 1000 IU
     Route: 048
  10. SULFASALAZINE [Concomitant]
     Active Substance: SULFASALAZINE
     Indication: Rheumatoid arthritis
  11. ENBREL [Concomitant]
     Active Substance: ETANERCEPT
     Indication: Rheumatoid arthritis
     Dosage: UNK
     Route: 065
  12. LYRICA [Concomitant]
     Active Substance: PREGABALIN
     Indication: Rheumatoid arthritis
     Route: 065

REACTIONS (9)
  - Arthralgia [Unknown]
  - Fatigue [Unknown]
  - Fibromyalgia [Unknown]
  - Insomnia [Unknown]
  - Musculoskeletal stiffness [Unknown]
  - Tenderness [Unknown]
  - Drug ineffective [Unknown]
  - Product use issue [Unknown]
  - Off label use [Unknown]
